FAERS Safety Report 5736994-1 (Version None)
Quarter: 2008Q2

REPORT INFORMATION
  Report Type: 
  Country: None (occurrence: None)
  Receive Date: 20080513
  Receipt Date: 20080513
  Transmission Date: 20081010
  Serious: Yes (Other)
  Sender: FDA-Public Use
  Company Number: None

PATIENT
  Age: 6 Year
  Sex: Male
  Weight: 24.9478 kg

DRUGS (1)
  1. SINGULAIR [Suspect]
     Indication: MULTIPLE ALLERGIES
     Dosage: 5 MG 1X DAY PO
     Route: 048
     Dates: start: 20060101, end: 20080503

REACTIONS (4)
  - AGITATION [None]
  - EMOTIONAL DISTRESS [None]
  - NIGHTMARE [None]
  - SUICIDAL IDEATION [None]
